FAERS Safety Report 17798198 (Version 1)
Quarter: 2020Q2

REPORT INFORMATION
  Report Type: Spontaneous
  Country: JP (occurrence: JP)
  Receive Date: 20200518
  Receipt Date: 20200518
  Transmission Date: 20200714
  Serious: Yes (Other)
  Sender: FDA-Public Use
  Company Number: JP-MYLANLABS-2020M1047980

PATIENT
  Age: 69 Year
  Sex: Female

DRUGS (2)
  1. UFT [Concomitant]
     Active Substance: TEGAFUR\URACIL
     Indication: LUNG ADENOCARCINOMA STAGE I
     Route: 065
  2. ANASTROZOLE. [Suspect]
     Active Substance: ANASTROZOLE
     Indication: INVASIVE DUCTAL BREAST CARCINOMA
     Dosage: UNK
     Route: 065

REACTIONS (3)
  - Atrial thrombosis [Recovered/Resolved]
  - Renal infarct [Unknown]
  - Cardiac ventricular thrombosis [Recovered/Resolved]
